FAERS Safety Report 13517544 (Version 1)
Quarter: 2017Q2

REPORT INFORMATION
  Report Type: Spontaneous
  Country: FR (occurrence: FR)
  Receive Date: 20170505
  Receipt Date: 20170505
  Transmission Date: 20170830
  Serious: Yes (Disabling)
  Sender: FDA-Public Use
  Company Number: FR-TEVA-764485ROM

PATIENT
  Age: 45 Year
  Sex: Male

DRUGS (1)
  1. OFLOXACINE TEVA 200 MG [Suspect]
     Active Substance: OFLOXACIN
     Indication: PROSTATITIS
     Dosage: 2 DOSAGE FORMS DAILY;
     Route: 048
     Dates: start: 20170327, end: 20170414

REACTIONS (2)
  - Tendon pain [Not Recovered/Not Resolved]
  - Walking disability [Not Recovered/Not Resolved]

NARRATIVE: CASE EVENT DATE: 20170414
